FAERS Safety Report 4968854-8 (Version None)
Quarter: 2006Q2

REPORT INFORMATION
  Report Type: 
  Country: None (occurrence: None)
  Receive Date: 20060411
  Receipt Date: 20060330
  Transmission Date: 20061013
  Serious: Yes (Hospitalization)
  Sender: FDA-Public Use
  Company Number: US-ROCHE-442728

PATIENT
  Age: 41 Year
  Sex: Female

DRUGS (4)
  1. XELODA [Suspect]
     Indication: BREAST CANCER
     Route: 065
     Dates: start: 20050523
  2. DIOVAN [Concomitant]
  3. VIT B6 [Concomitant]
  4. ASPIRIN [Concomitant]
     Dosage: DRUG REPORTED AS 'BABY ASPIRIN'

REACTIONS (1)
  - PULMONARY THROMBOSIS [None]
